FAERS Safety Report 6682322-7 (Version None)
Quarter: 2010Q2

REPORT INFORMATION
  Report Type: 
  Country: None (occurrence: None)
  Receive Date: 20100414
  Receipt Date: 20100414
  Transmission Date: 20101027
  Serious: Yes (Hospitalization)
  Sender: FDA-Public Use
  Company Number: None

PATIENT
  Age: 56 Year
  Sex: Male
  Weight: 107 kg

DRUGS (1)
  1. CIPROFLOXACIN [Suspect]
     Indication: TOOTH INFECTION
     Dosage: PO
     Route: 048
     Dates: start: 20100106, end: 20100114

REACTIONS (1)
  - NEPHRITIS [None]
